FAERS Safety Report 16849606 (Version 1)
Quarter: 2019Q3

REPORT INFORMATION
  Report Type: Spontaneous
  Country: US (occurrence: US)
  Receive Date: 20190803
  Receipt Date: 20190803
  Transmission Date: 20191005
  Serious: No
  Sender: FDA-Public Use
  Company Number: None

PATIENT
  Age: 40 Year
  Sex: Male

DRUGS (1)
  1. CAPECITABINE 500MG SANDOZ [Suspect]
     Active Substance: CAPECITABINE
     Indication: COLON CANCER
     Route: 048
     Dates: start: 201905

REACTIONS (3)
  - Depressed level of consciousness [None]
  - Confusional state [None]
  - Tremor [None]

NARRATIVE: CASE EVENT DATE: 20190723
